FAERS Safety Report 8565904-7 (Version None)
Quarter: 2012Q3

REPORT INFORMATION
  Report Type: 
  Country: None (occurrence: None)
  Receive Date: 20120724
  Receipt Date: 20120711
  Transmission Date: 20120928
  Serious: Yes (Death, Other)
  Sender: FDA-Public Use
  Company Number: 2012P1050068

PATIENT
  Age: 32 Year
  Sex: Male

DRUGS (11)
  1. NORDIAZEPAM (NO PREF. NAME) [Suspect]
     Indication: ACCIDENTAL POISONING
  2. TRAZODONE HCL [Suspect]
     Indication: ACCIDENTAL POISONING
  3. M-CPP (NO PREF. NAME) [Suspect]
     Indication: ACCIDENTAL POISONING
  4. PREGABALIN [Suspect]
     Indication: ACCIDENTAL POISONING
  5. OXAZEPAM (NO PREF. NAME) [Suspect]
     Indication: ACCIDENTAL POISONING
  6. DIAZEPAM [Suspect]
     Indication: ACCIDENTAL POISONING
  7. OXYCONTIN [Suspect]
     Indication: ACCIDENTAL POISONING
  8. OXYMORPHONE [Suspect]
     Indication: ACCIDENTAL POISONING
  9. LEVETIRACETAM [Suspect]
     Indication: ACCIDENTAL POISONING
  10. MIRTAZAPINE [Suspect]
     Indication: ACCIDENTAL POISONING
  11. TEMAZEPAM [Suspect]
     Indication: ACCIDENTAL POISONING

REACTIONS (5)
  - DRUG SCREEN POSITIVE [None]
  - RESUSCITATION [None]
  - HYPOXIC-ISCHAEMIC ENCEPHALOPATHY [None]
  - ACCIDENTAL POISONING [None]
  - COMPLETED SUICIDE [None]
